FAERS Safety Report 9334254 (Version 1)
Quarter: 2013Q2

REPORT INFORMATION
  Report Type: Spontaneous
  Country: US (occurrence: US)
  Receive Date: 20130606
  Receipt Date: 20130606
  Transmission Date: 20140414
  Serious: No
  Sender: FDA-Public Use
  Company Number: US-AMGEN-USASP2013015020

PATIENT
  Age: 79 Year
  Sex: Female
  Weight: 77.1 kg

DRUGS (9)
  1. PROLIA [Suspect]
     Indication: OSTEOPOROSIS POSTMENOPAUSAL
     Dosage: 60 MG, Q6MO
     Dates: start: 20110623, end: 20130307
  2. PROLIA [Suspect]
     Dosage: 60 MG, Q6MO
     Dates: start: 20120703
  3. PROLIA [Suspect]
     Dosage: 60 MG, Q6MO
     Dates: start: 20130107
  4. PROLIA [Suspect]
  5. ULTRACET [Concomitant]
  6. DICLOFENAC [Concomitant]
     Dosage: 75 MG, BID
  7. ATIVAN [Concomitant]
     Dosage: 0.5 MG, BID
  8. TYLENOL                            /00020001/ [Concomitant]
  9. ALEVE [Concomitant]
     Route: 048

REACTIONS (5)
  - Musculoskeletal discomfort [Unknown]
  - Muscle spasms [Unknown]
  - Arthralgia [Unknown]
  - Myalgia [Unknown]
  - Bone pain [Not Recovered/Not Resolved]
